FAERS Safety Report 17307240 (Version 7)
Quarter: 2021Q2

REPORT INFORMATION
  Report Type: Report from Study
  Country: US (occurrence: US)
  Receive Date: 20200123
  Receipt Date: 20210422
  Transmission Date: 20210716
  Serious: No
  Sender: FDA-Public Use
  Company Number: NVSC2020US015768

PATIENT
  Sex: Female

DRUGS (1)
  1. COSENTYX [Suspect]
     Active Substance: SECUKINUMAB
     Indication: PSORIATIC ARTHROPATHY
     Dosage: 300 MG, Q4W
     Route: 058

REACTIONS (9)
  - Rhinorrhoea [Not Recovered/Not Resolved]
  - Pain in extremity [Unknown]
  - Gait disturbance [Unknown]
  - Arthralgia [Recovering/Resolving]
  - Dysphonia [Not Recovered/Not Resolved]
  - Arthropathy [Unknown]
  - Product dose omission issue [Not Recovered/Not Resolved]
  - Neoplasm skin [Unknown]
  - Dysgraphia [Unknown]
